FAERS Safety Report 5144794-9 (Version None)
Quarter: 2006Q4

REPORT INFORMATION
  Report Type: 
  Country: None (occurrence: None)
  Receive Date: 20061103
  Receipt Date: 20061103
  Transmission Date: 20070319
  Serious: No
  Sender: FDA-Public Use
  Company Number: None

PATIENT
  Age: 31 Year
  Sex: Female
  Weight: 69.8539 kg

DRUGS (2)
  1. SERTRALINE [Suspect]
     Indication: DEPRESSION
     Dosage: 50 MG 1 QD 10/06
     Dates: start: 20061001
  2. BUPROPION HCL [Suspect]
     Indication: DEPRESSION
     Dosage: 150 MG 1 QD 10/06

REACTIONS (5)
  - DEPRESSION [None]
  - DRUG INTOLERANCE [None]
  - HEART RATE INCREASED [None]
  - PANIC ATTACK [None]
  - THERAPEUTIC RESPONSE UNEXPECTED WITH DRUG SUBSTITUTION [None]
